FAERS Safety Report 7982561-9 (Version None)
Quarter: 2011Q4

REPORT INFORMATION
  Report Type: 
  Country: None (occurrence: None)
  Receive Date: 20111215
  Receipt Date: 20111212
  Transmission Date: 20120403
  Serious: Yes (Other)
  Sender: FDA-Public Use
  Company Number: US-GLAXOSMITHKLINE-A0881308A

PATIENT
  Age: 68 Year
  Sex: Female

DRUGS (7)
  1. SPIRIVA [Suspect]
     Route: 065
  2. GLEEVEC [Suspect]
     Indication: CHEMOTHERAPY
     Route: 048
  3. ADVAIR DISKUS 100/50 [Suspect]
     Indication: CHRONIC OBSTRUCTIVE PULMONARY DISEASE
     Dosage: 1PUFF TWICE PER DAY
     Route: 055
     Dates: start: 20090101
  4. OMEPRAZOLE [Concomitant]
  5. VENLAFAXINE [Concomitant]
  6. POTASSIUM CHLORIDE [Concomitant]
  7. UNSPECIFIED MEDICATION [Concomitant]

REACTIONS (2)
  - EYE DISORDER [None]
  - EYE HAEMORRHAGE [None]
